FAERS Safety Report 6853123-1 (Version None)
Quarter: 2010Q3

REPORT INFORMATION
  Report Type: 
  Country: None (occurrence: None)
  Receive Date: 20100717
  Receipt Date: 20071129
  Transmission Date: 20110219
  Serious: No
  Sender: FDA-Public Use
  Company Number: US-PFIZER INC-2007102470

PATIENT
  Sex: Female
  Weight: 63.6 kg

DRUGS (7)
  1. CHANTIX [Suspect]
     Indication: SMOKING CESSATION THERAPY
     Dates: start: 20060101
  2. HYDROCHLOROTHIAZIDE [Concomitant]
  3. PROTONIX [Concomitant]
  4. LISINOPRIL [Concomitant]
  5. PREMARIN [Concomitant]
  6. LIPITOR [Concomitant]
  7. XANAX [Concomitant]

REACTIONS (4)
  - ABNORMAL DREAMS [None]
  - MUSCLE TWITCHING [None]
  - NIGHTMARE [None]
  - SLEEP DISORDER [None]
